FAERS Safety Report 16300022 (Version 3)
Quarter: 2020Q4

REPORT INFORMATION
  Report Type: Spontaneous
  Country: US (occurrence: US)
  Receive Date: 20190510
  Receipt Date: 20201229
  Transmission Date: 20210113
  Serious: Yes (Hospitalization, Other)
  Sender: FDA-Public Use
  Company Number: US-ASTRAZENECA-2019SE68162

PATIENT
  Age: 59 Year
  Sex: Female
  Weight: 159.7 kg

DRUGS (57)
  1. NEXIUM [Suspect]
     Active Substance: ESOMEPRAZOLE MAGNESIUM
     Indication: GASTROOESOPHAGEAL REFLUX DISEASE
     Dosage: GENERIC
     Route: 065
     Dates: start: 2016, end: 2020
  2. TAGAMET [Concomitant]
     Active Substance: CIMETIDINE
  3. CYCLOPENTOLATE. [Concomitant]
     Active Substance: CYCLOPENTOLATE
  4. ILEVRO [Concomitant]
     Active Substance: NEPAFENAC
  5. NEXIUM [Suspect]
     Active Substance: ESOMEPRAZOLE MAGNESIUM
     Indication: GASTROOESOPHAGEAL REFLUX DISEASE
     Route: 048
     Dates: start: 20140725, end: 201610
  6. HYDROXYCHLOROQUINE [Concomitant]
     Active Substance: HYDROXYCHLOROQUINE
     Indication: IMMUNOSUPPRESSION
     Dates: start: 20151120, end: 20160208
  7. DULOXETINE. [Concomitant]
     Active Substance: DULOXETINE
     Indication: NEURALGIA
     Dates: start: 20140210, end: 20170326
  8. METHADONE [Concomitant]
     Active Substance: METHADONE HYDROCHLORIDE
  9. TIZANIDINE. [Concomitant]
     Active Substance: TIZANIDINE
  10. ANORO ELLIPTA [Concomitant]
     Active Substance: UMECLIDINIUM BROMIDE\VILANTEROL TRIFENATATE
  11. DIPRIVAN [Concomitant]
     Active Substance: PROPOFOL
  12. HYDRALAZINE [Concomitant]
     Active Substance: HYDRALAZINE HYDROCHLORIDE
  13. GLUCAGON. [Concomitant]
     Active Substance: GLUCAGON
  14. NEXIUM [Suspect]
     Active Substance: ESOMEPRAZOLE MAGNESIUM
     Indication: GASTROOESOPHAGEAL REFLUX DISEASE
     Route: 048
     Dates: start: 200702, end: 201504
  15. FUROSEMIDE. [Concomitant]
     Active Substance: FUROSEMIDE
     Indication: HYPERTENSION
     Dates: start: 20140902, end: 20160228
  16. IRBESARTAN. [Concomitant]
     Active Substance: IRBESARTAN
     Indication: HYPERTENSION
     Dates: start: 20120312, end: 20160228
  17. TRAZODONE [Concomitant]
     Active Substance: TRAZODONE HYDROCHLORIDE
     Indication: SEDATIVE THERAPY
     Dates: start: 20100323, end: 20160426
  18. DULOXETINE. [Concomitant]
     Active Substance: DULOXETINE
     Indication: ANTIDEPRESSANT THERAPY
     Dates: start: 20140210, end: 20170326
  19. AZITHROMYCIN ANHYDROUS. [Concomitant]
     Active Substance: AZITHROMYCIN ANHYDROUS
     Indication: ANTIBIOTIC THERAPY
     Dates: start: 20110609, end: 20170326
  20. AMBIEN [Concomitant]
     Active Substance: ZOLPIDEM TARTRATE
  21. NYSTATIN. [Concomitant]
     Active Substance: NYSTATIN
  22. CEFUROXIME. [Concomitant]
     Active Substance: CEFUROXIME
     Indication: ANTIBIOTIC THERAPY
     Dates: start: 20170331
  23. ACETAMINOPHEN. [Concomitant]
     Active Substance: ACETAMINOPHEN
     Indication: PAIN
     Dates: start: 1999
  24. TUMS [Concomitant]
     Active Substance: CALCIUM CARBONATE
     Dates: start: 1999, end: 2014
  25. AVAPRO [Concomitant]
     Active Substance: IRBESARTAN
  26. CYMBALTA [Concomitant]
     Active Substance: DULOXETINE HYDROCHLORIDE
  27. LAMICTAL [Concomitant]
     Active Substance: LAMOTRIGINE
  28. ENOXAPARIN [Concomitant]
     Active Substance: ENOXAPARIN
  29. MACROBID [Concomitant]
     Active Substance: NITROFURANTOIN\NITROFURANTOIN MONOHYDRATE
  30. NEXIUM [Suspect]
     Active Substance: ESOMEPRAZOLE MAGNESIUM
     Indication: GASTROOESOPHAGEAL REFLUX DISEASE
     Route: 048
     Dates: start: 20070220, end: 20150116
  31. NEXIUM 24HR [Suspect]
     Active Substance: ESOMEPRAZOLE MAGNESIUM
     Indication: GASTROOESOPHAGEAL REFLUX DISEASE
     Route: 048
     Dates: start: 201408, end: 2016
  32. ARIPIPRAZOLE. [Concomitant]
     Active Substance: ARIPIPRAZOLE
  33. NEXIUM [Suspect]
     Active Substance: ESOMEPRAZOLE MAGNESIUM
     Indication: GASTROOESOPHAGEAL REFLUX DISEASE
     Route: 048
     Dates: start: 20140725, end: 201610
  34. NEXIUM 24HR [Suspect]
     Active Substance: ESOMEPRAZOLE MAGNESIUM
     Indication: GASTROOESOPHAGEAL REFLUX DISEASE
     Route: 048
     Dates: start: 201408, end: 2016
  35. HYDROXYCHLOROQUINE [Concomitant]
     Active Substance: HYDROXYCHLOROQUINE
     Indication: PARASITE ALLERGY
     Dates: start: 20151120, end: 20160208
  36. PRAVASTATIN. [Concomitant]
     Active Substance: PRAVASTATIN
     Indication: HYPERLIPIDAEMIA
     Dates: start: 20130906, end: 20160131
  37. FUROSEMIDE. [Concomitant]
     Active Substance: FUROSEMIDE
     Indication: DIURETIC THERAPY
     Dates: start: 20140902, end: 20160228
  38. OXYCONTIN [Concomitant]
     Active Substance: OXYCODONE HYDROCHLORIDE
     Indication: ANALGESIC THERAPY
     Dates: start: 20091207, end: 20160426
  39. BESIVANCE [Concomitant]
     Active Substance: BESIFLOXACIN
  40. PHENYLEPHRINE [Concomitant]
     Active Substance: PHENYLEPHRINE HYDROCHLORIDE
  41. CEFUROXIME. [Concomitant]
     Active Substance: CEFUROXIME
  42. FENTANYL. [Concomitant]
     Active Substance: FENTANYL
  43. NORVASC [Concomitant]
     Active Substance: AMLODIPINE BESYLATE
  44. BLISTEX [Concomitant]
     Active Substance: BENZOCAINE
  45. NEXIUM [Suspect]
     Active Substance: ESOMEPRAZOLE MAGNESIUM
     Indication: GASTROOESOPHAGEAL REFLUX DISEASE
     Route: 048
     Dates: start: 200702, end: 201504
  46. SULFASALAZINE. [Concomitant]
     Active Substance: SULFASALAZINE
     Indication: ANTIINFLAMMATORY THERAPY
     Dates: start: 20110615, end: 20151121
  47. WARFARIN [Concomitant]
     Active Substance: WARFARIN
     Indication: ANTICOAGULANT THERAPY
     Dates: start: 20120421, end: 20170326
  48. ACETAMINOPHEN. [Concomitant]
     Active Substance: ACETAMINOPHEN
     Indication: HEADACHE
     Dates: start: 1999
  49. VITAMIN [Concomitant]
     Active Substance: VITAMINS
  50. DUREZOL [Concomitant]
     Active Substance: DIFLUPREDNATE
  51. CEFDINIR. [Concomitant]
     Active Substance: CEFDINIR
  52. NEXIUM [Suspect]
     Active Substance: ESOMEPRAZOLE MAGNESIUM
     Indication: GASTROOESOPHAGEAL REFLUX DISEASE
     Route: 048
     Dates: start: 20070220, end: 20150116
  53. NEXIUM [Suspect]
     Active Substance: ESOMEPRAZOLE MAGNESIUM
     Indication: GASTROOESOPHAGEAL REFLUX DISEASE
     Dosage: GENERIC
     Route: 065
     Dates: start: 2016, end: 2020
  54. TRAZODONE [Concomitant]
     Active Substance: TRAZODONE HYDROCHLORIDE
     Indication: ANTIDEPRESSANT THERAPY
     Dates: start: 20100323, end: 20160426
  55. ROLAIDS [Concomitant]
     Active Substance: CALCIUM CARBONATE\MAGNESIUM HYDROXIDE
     Dates: start: 1999, end: 2001
  56. TRILIPIX [Concomitant]
     Active Substance: FENOFIBRIC ACID
  57. CLOTRIMAZOLE. [Concomitant]
     Active Substance: CLOTRIMAZOLE

REACTIONS (8)
  - Renal ischaemia [Unknown]
  - Chronic kidney disease [Not Recovered/Not Resolved]
  - Tubulointerstitial nephritis [Unknown]
  - Renal failure [Unknown]
  - Renal tubular necrosis [Unknown]
  - Gastrooesophageal reflux disease [Not Recovered/Not Resolved]
  - Acute kidney injury [Not Recovered/Not Resolved]
  - Renal injury [Unknown]

NARRATIVE: CASE EVENT DATE: 2014
